FAERS Safety Report 5612583-4 (Version None)
Quarter: 2008Q1

REPORT INFORMATION
  Report Type: 
  Country: None (occurrence: None)
  Receive Date: 20080204
  Receipt Date: 20080128
  Transmission Date: 20080703
  Serious: Yes (Death, Life-Threatening, Disabling)
  Sender: FDA-Public Use
  Company Number: A0703643A

PATIENT
  Age: 72 Year
  Sex: Female

DRUGS (2)
  1. COREG CR [Suspect]
     Indication: DRUG USE FOR UNKNOWN INDICATION
     Dosage: 10MG UNKNOWN
     Route: 048
     Dates: end: 20071225
  2. NO CONCURRENT MEDICATION [Concomitant]

REACTIONS (1)
  - NEOPLASM MALIGNANT [None]
